FAERS Safety Report 9543743 (Version 1)
Quarter: 2013Q3

REPORT INFORMATION
  Report Type: Spontaneous
  Country: US (occurrence: US)
  Receive Date: 20130923
  Receipt Date: 20130923
  Transmission Date: 20140515
  Serious: Yes (Other)
  Sender: FDA-Public Use
  Company Number: US-BAXTER-2013BAX036789

PATIENT
  Age: 72 Year
  Sex: Male

DRUGS (1)
  1. OSMITROL INJECTION (MANNITOL INJECTION, USP) [Suspect]
     Indication: REDUCTION OF INCREASED INTRACRANIAL PRESSURE

REACTIONS (1)
  - Renal failure acute [Recovered/Resolved]
